FAERS Safety Report 24586159 (Version 1)
Quarter: 2024Q4

REPORT INFORMATION
  Report Type: Spontaneous
  Country: JP (occurrence: JP)
  Receive Date: 20241106
  Receipt Date: 20241106
  Transmission Date: 20250115
  Serious: Yes (Life-Threatening, Hospitalization, Other)
  Sender: BRISTOL-MYERS SQUIBB COMPANY
  Company Number: JP-BRISTOL-MYERS SQUIBB COMPANY-2024-173392

PATIENT
  Sex: Male

DRUGS (3)
  1. YERVOY [Suspect]
     Active Substance: IPILIMUMAB
     Indication: Pleural mesothelioma malignant
     Dates: start: 2022, end: 2022
  2. OPDIVO [Suspect]
     Active Substance: NIVOLUMAB
     Indication: Pleural mesothelioma malignant
     Dates: start: 2022, end: 2022
  3. OPDIVO [Suspect]
     Active Substance: NIVOLUMAB
     Dates: start: 20240730, end: 20240730

REACTIONS (12)
  - Cytokine storm [Unknown]
  - Inflammation [Unknown]
  - Adrenal disorder [Unknown]
  - Pruritus [Unknown]
  - Oedema peripheral [Unknown]
  - Dysphagia [Unknown]
  - Decreased appetite [Unknown]
  - Dysphonia [Unknown]
  - Asthenia [Unknown]
  - Tremor [Unknown]
  - Erythema [Unknown]
  - Pleural mesothelioma malignant recurrent [Unknown]

NARRATIVE: CASE EVENT DATE: 20220101
